FAERS Safety Report 25658742 (Version 2)
Quarter: 2025Q3

REPORT INFORMATION
  Report Type: Report from Study
  Country: US (occurrence: US)
  Receive Date: 20250808
  Receipt Date: 20250925
  Transmission Date: 20251020
  Serious: Yes (Hospitalization)
  Sender: INSMED
  Company Number: US-INSMED-2024-00766-USAA

PATIENT
  Sex: Female

DRUGS (2)
  1. ARIKAYCE [Suspect]
     Active Substance: AMIKACIN
     Indication: Mycobacterial infection
     Dosage: 590 MILLIGRAM, TIW
     Route: 055
  2. SODIUM CHLORIDE [Concomitant]
     Active Substance: SODIUM CHLORIDE
     Indication: Product used for unknown indication
     Dosage: UNK, QD
     Route: 055

REACTIONS (9)
  - Condition aggravated [Unknown]
  - Influenza [Recovering/Resolving]
  - Bacterial infection [Recovering/Resolving]
  - Pneumothorax [Recovering/Resolving]
  - Viral infection [Recovering/Resolving]
  - Sputum increased [Recovering/Resolving]
  - Cough [Recovering/Resolving]
  - Unevaluable event [Unknown]
  - Therapy interrupted [Unknown]

NARRATIVE: CASE EVENT DATE: 20240101
